FAERS Safety Report 7342327-X (Version None)
Quarter: 2011Q1

REPORT INFORMATION
  Report Type: 
  Country: None (occurrence: None)
  Receive Date: 20110310
  Receipt Date: 20110301
  Transmission Date: 20110831
  Serious: No
  Sender: FDA-Public Use
  Company Number: US-BIOGENIDEC-2011BI008001

PATIENT
  Sex: Female

DRUGS (2)
  1. TYSABRI [Suspect]
     Indication: MULTIPLE SCLEROSIS
     Route: 042
     Dates: start: 20101029
  2. TYSABRI [Suspect]
     Route: 042
     Dates: start: 20090818, end: 20090915

REACTIONS (6)
  - NASOPHARYNGITIS [None]
  - BRONCHITIS [None]
  - SINUSITIS [None]
  - PARANASAL SINUS HYPERSECRETION [None]
  - DECREASED IMMUNE RESPONSIVENESS [None]
  - COUGH [None]
